FAERS Safety Report 13022416 (Version 4)
Quarter: 2018Q2

REPORT INFORMATION
  Report Type: Report from Study
  Country: JP (occurrence: JP)
  Receive Date: 20161213
  Receipt Date: 20180404
  Transmission Date: 20180711
  Serious: Yes (Disabling)
  Sender: FDA-Public Use
  Company Number: PHJP2016JP036092

PATIENT
  Age: 71 Year
  Sex: Female

DRUGS (2)
  1. TAFINLAR [Suspect]
     Active Substance: DABRAFENIB MESYLATE
     Indication: MALIGNANT MELANOMA STAGE IV
     Dosage: 150 MG, BID
     Route: 048
     Dates: start: 20160823, end: 20161206
  2. MEKINIST [Suspect]
     Active Substance: TRAMETINIB DIMETHYL SULFOXIDE
     Indication: MALIGNANT MELANOMA STAGE IV
     Dosage: 2 MG, QD
     Route: 048
     Dates: start: 20160823, end: 20161206

REACTIONS (12)
  - Cystitis bacterial [Recovered/Resolved]
  - Malaise [Recovered/Resolved]
  - Haematuria [Unknown]
  - Rash [Recovered/Resolved]
  - Oedema peripheral [Recovered/Resolved]
  - White blood cell count increased [Unknown]
  - Chills [Recovered/Resolved]
  - Pyrexia [Recovered/Resolved]
  - Cerebral infarction [Unknown]
  - Language disorder [Unknown]
  - C-reactive protein increased [Unknown]
  - Hypogeusia [Recovered/Resolved]

NARRATIVE: CASE EVENT DATE: 20160904
